FAERS Safety Report 6618642-1 (Version None)
Quarter: 2010Q1

REPORT INFORMATION
  Report Type: 
  Country: None (occurrence: None)
  Receive Date: 20100305
  Receipt Date: 20100305
  Transmission Date: 20100710
  Serious: Yes (Life-Threatening, Other)
  Sender: FDA-Public Use
  Company Number: None

PATIENT
  Age: 66 Year
  Sex: Female
  Weight: 57.6068 kg

DRUGS (2)
  1. AMBIEN [Suspect]
     Indication: INSOMNIA
     Dosage: 1 PM NIGHTLY ORAL
     Route: 048
     Dates: start: 20090101
  2. LUNESTA [Suspect]
     Indication: INSOMNIA
     Dosage: 1 PM NIGHTLY ORAL
     Route: 048
     Dates: start: 20100101

REACTIONS (4)
  - ABNORMAL SLEEP-RELATED EVENT [None]
  - MEMORY IMPAIRMENT [None]
  - SLEEP-RELATED EATING DISORDER [None]
  - SOMNAMBULISM [None]
